FAERS Safety Report 13519869 (Version 4)
Quarter: 2018Q1

REPORT INFORMATION
  Report Type: Report from Study
  Country: US (occurrence: US)
  Receive Date: 20170506
  Receipt Date: 20180105
  Transmission Date: 20180508
  Serious: Yes (Other)
  Sender: FDA-Public Use
  Company Number: PHEH2017US012413

PATIENT
  Age: 62 Year
  Sex: Female

DRUGS (3)
  1. GLEEVEC [Suspect]
     Active Substance: IMATINIB MESYLATE
     Dosage: 100 MG, QD
     Route: 048
  2. GLEEVEC [Suspect]
     Active Substance: IMATINIB MESYLATE
     Indication: PRODUCT USED FOR UNKNOWN INDICATION
     Dosage: 400 MG, QD
     Route: 048
  3. GLEEVEC [Suspect]
     Active Substance: IMATINIB MESYLATE
     Dosage: 300 MG, QD
     Route: 048
     Dates: start: 20020526

REACTIONS (21)
  - Euphoric mood [Unknown]
  - Wound [Unknown]
  - Nasopharyngitis [Unknown]
  - Eye haemorrhage [Recovered/Resolved]
  - Kidney congestion [Unknown]
  - Pyrexia [Unknown]
  - Upper respiratory tract infection [Recovered/Resolved]
  - Eye infection [Unknown]
  - Rash [Unknown]
  - Dyspnoea [Recovered/Resolved]
  - Dry skin [Unknown]
  - Sinusitis [Unknown]
  - Fatigue [Recovered/Resolved]
  - Cough [Recovered/Resolved]
  - Hyperhidrosis [Unknown]
  - Bone pain [Unknown]
  - Neck pain [Unknown]
  - Swollen tongue [Unknown]
  - Oropharyngeal pain [Recovered/Resolved]
  - Sneezing [Recovered/Resolved]
  - Burning sensation [Unknown]

NARRATIVE: CASE EVENT DATE: 20171206
